FAERS Safety Report 24328184 (Version 3)
Quarter: 2025Q2

REPORT INFORMATION
  Report Type: Spontaneous
  Country: ES (occurrence: ES)
  Receive Date: 20240917
  Receipt Date: 20250604
  Transmission Date: 20250717
  Serious: Yes (Other)
  Sender: MYLAN
  Company Number: ES-UCBSA-2024044224

PATIENT
  Age: 35 Year
  Sex: Male

DRUGS (24)
  1. LEVETIRACETAM [Suspect]
     Active Substance: LEVETIRACETAM
     Indication: Epilepsy
     Dosage: 500 MILLIGRAM, BID (500 MILLIGRAM, 2X/DAY (BID))
     Route: 065
  2. LEVETIRACETAM [Suspect]
     Active Substance: LEVETIRACETAM
     Indication: Haemangioma
     Dosage: 500 MILLIGRAM, BID (500 MILLIGRAM, 2X/DAY (BID))
  3. LEVETIRACETAM [Suspect]
     Active Substance: LEVETIRACETAM
     Indication: Seizure
     Dosage: 500 MILLIGRAM, BID (500 MILLIGRAM, 2X/DAY (BID))
  4. LEVETIRACETAM [Suspect]
     Active Substance: LEVETIRACETAM
     Dosage: 500 MILLIGRAM, BID (500 MILLIGRAM, 2X/DAY (BID))
     Route: 065
  5. LEVETIRACETAM [Suspect]
     Active Substance: LEVETIRACETAM
     Route: 065
  6. LEVETIRACETAM [Suspect]
     Active Substance: LEVETIRACETAM
  7. LEVETIRACETAM [Suspect]
     Active Substance: LEVETIRACETAM
  8. LEVETIRACETAM [Suspect]
     Active Substance: LEVETIRACETAM
     Route: 065
  9. ZONISAMIDE [Suspect]
     Active Substance: ZONISAMIDE
     Indication: Seizure
  10. ZONISAMIDE [Suspect]
     Active Substance: ZONISAMIDE
     Route: 065
  11. ZONISAMIDE [Suspect]
     Active Substance: ZONISAMIDE
     Route: 065
  12. ZONISAMIDE [Suspect]
     Active Substance: ZONISAMIDE
  13. VALPROATE [Suspect]
     Active Substance: VALPROIC ACID
     Indication: Epilepsy
  14. VALPROATE [Suspect]
     Active Substance: VALPROIC ACID
     Indication: Haemangioma
     Route: 065
  15. VALPROATE [Suspect]
     Active Substance: VALPROIC ACID
     Indication: Seizure
     Route: 065
  16. VALPROATE [Suspect]
     Active Substance: VALPROIC ACID
  17. PHENYTOIN [Concomitant]
     Active Substance: PHENYTOIN
     Indication: Haemangioma
  18. PHENYTOIN [Concomitant]
     Active Substance: PHENYTOIN
     Indication: Haemangioma
     Route: 065
  19. PHENYTOIN [Concomitant]
     Active Substance: PHENYTOIN
     Indication: Seizure
     Route: 065
  20. PHENYTOIN [Concomitant]
     Active Substance: PHENYTOIN
  21. PREDNISONE [Concomitant]
     Active Substance: PREDNISONE
     Indication: Epilepsy
     Dosage: 30 MILLIGRAM, BID (60 MG, QD)
  22. PREDNISONE [Concomitant]
     Active Substance: PREDNISONE
     Indication: Haemangioma
     Dosage: 30 MILLIGRAM, BID (60 MG, QD)
     Route: 048
  23. PREDNISONE [Concomitant]
     Active Substance: PREDNISONE
     Dosage: 30 MILLIGRAM, BID (60 MG, QD)
     Route: 048
  24. PREDNISONE [Concomitant]
     Active Substance: PREDNISONE
     Dosage: 30 MILLIGRAM, BID (60 MG, QD)

REACTIONS (3)
  - Drug reaction with eosinophilia and systemic symptoms [Recovered/Resolved]
  - Condition aggravated [Recovered/Resolved]
  - Off label use [Unknown]
